FAERS Safety Report 22590757 (Version 2)
Quarter: 2023Q2

REPORT INFORMATION
  Report Type: Spontaneous
  Country: US (occurrence: None)
  Receive Date: 20230612
  Receipt Date: 20230620
  Transmission Date: 20230721
  Serious: No
  Sender: FDA-Public Use
  Company Number: 2023A131376

PATIENT
  Age: 20487 Day
  Sex: Female

DRUGS (1)
  1. SYMBICORT [Suspect]
     Active Substance: BUDESONIDE\FORMOTEROL FUMARATE DIHYDRATE
     Indication: Asthma
     Dosage: 80 MG TWO TIMES A DAY
     Route: 055
     Dates: start: 20230510, end: 20230531

REACTIONS (7)
  - Fatigue [Unknown]
  - Cough [Unknown]
  - Insomnia [Unknown]
  - Agitation [Unknown]
  - Drug ineffective [Unknown]
  - Device leakage [Unknown]
  - Product use issue [Unknown]

NARRATIVE: CASE EVENT DATE: 20230518
